FAERS Safety Report 8969808 (Version 1)
Quarter: 2012Q4

REPORT INFORMATION
  Report Type: 
  Country: LV (occurrence: LV)
  Receive Date: 20121218
  Receipt Date: 20121218
  Transmission Date: 20130627
  Serious: No
  Sender: FDA-Public Use
  Company Number: LV-SANOFI-AVENTIS-2012SA089391

PATIENT
  Age: 17 Year
  Sex: Female

DRUGS (2)
  1. ARAVA [Suspect]
     Indication: RHEUMATOID ARTHRITIS
     Route: 048
     Dates: start: 201203, end: 201209
  2. METOTREXATE [Concomitant]
     Indication: RHEUMATOID ARTHRITIS
     Dates: end: 201203

REACTIONS (1)
  - Exposure during pregnancy [Unknown]
